FAERS Safety Report 6241592-X (Version None)
Quarter: 2009Q2

REPORT INFORMATION
  Report Type: 
  Country: None (occurrence: None)
  Receive Date: 20090623
  Receipt Date: 20041102
  Transmission Date: 20091009
  Serious: Yes (Hospitalization)
  Sender: FDA-Public Use
  Company Number: TR-ROCHE-384924

PATIENT
  Sex: Male
  Weight: 64 kg

DRUGS (36)
  1. DACLIZUMAB [Suspect]
     Route: 042
     Dates: start: 20041021
  2. DACLIZUMAB [Suspect]
     Route: 042
     Dates: start: 20041105
  3. MYCOPHENOLATE MOFETIL [Suspect]
     Route: 048
     Dates: start: 20041020, end: 20041101
  4. MYCOPHENOLATE MOFETIL [Suspect]
     Route: 048
     Dates: start: 20041105
  5. MYCOPHENOLATE MOFETIL [Suspect]
     Route: 048
     Dates: start: 20050809
  6. MYCOPHENOLATE MOFETIL [Suspect]
     Route: 048
     Dates: start: 20050811
  7. MYCOPHENOLATE MOFETIL [Suspect]
     Route: 048
     Dates: start: 20050920
  8. MYCOPHENOLATE MOFETIL [Suspect]
     Route: 048
     Dates: start: 20051023, end: 20051023
  9. MYCOPHENOLATE MOFETIL [Suspect]
     Route: 048
     Dates: start: 20051024, end: 20051024
  10. MYCOPHENOLATE MOFETIL [Suspect]
     Route: 048
     Dates: start: 20051025, end: 20051025
  11. MYCOPHENOLATE MOFETIL [Suspect]
     Route: 048
     Dates: start: 20051026
  12. TACROLIMUS [Suspect]
     Route: 048
     Dates: start: 20041020
  13. TACROLIMUS [Suspect]
     Route: 048
     Dates: start: 20041123
  14. TACROLIMUS [Suspect]
     Route: 048
     Dates: start: 20041207
  15. TACROLIMUS [Suspect]
     Route: 048
     Dates: start: 20050111
  16. TACROLIMUS [Suspect]
     Route: 048
     Dates: start: 20050823
  17. TACROLIMUS [Suspect]
     Route: 048
     Dates: start: 20050920
  18. METHYLPREDNISOLONE [Suspect]
     Route: 048
     Dates: start: 20041020
  19. METHYLPREDNISOLONE [Suspect]
     Route: 048
     Dates: start: 20041025
  20. METHYLPREDNISOLONE [Suspect]
     Route: 048
     Dates: start: 20041104
  21. METHYLPREDNISOLONE [Suspect]
     Route: 048
     Dates: start: 20041228
  22. METHYLPREDNISOLONE [Suspect]
     Route: 048
     Dates: start: 20050203
  23. METHYLPREDNISOLONE [Suspect]
     Route: 048
     Dates: start: 20050610
  24. METHYLPREDNISOLONE [Suspect]
     Route: 048
     Dates: start: 20050823
  25. METHYLPREDNISOLONE [Suspect]
     Route: 042
     Dates: start: 20041022
  26. ACYCLOVIR [Concomitant]
     Route: 048
     Dates: start: 20041020, end: 20050218
  27. SULFAMETHOXAZOLE AND TRIMETHOPRIM [Concomitant]
     Dosage: DOSE REPORTED: 800
     Route: 048
     Dates: start: 20041020, end: 20050426
  28. FLUCONAZOLE [Concomitant]
     Route: 048
     Dates: start: 20041020, end: 20050218
  29. LANSOPRAZOLE [Concomitant]
     Route: 048
     Dates: start: 20041020
  30. AMLODIPINE BESYLATE [Concomitant]
     Dosage: FREQUENCY REPORTED: 1 PER 1
     Route: 048
     Dates: start: 20041023, end: 20041228
  31. METRONIDAZOLE [Concomitant]
     Dosage: FORM: VIAL
     Route: 042
     Dates: start: 20041101, end: 20041106
  32. OMEPRAZOLE [Concomitant]
     Route: 048
     Dates: start: 20041020
  33. OMEPRAZOLE [Concomitant]
     Route: 048
     Dates: start: 20050207, end: 20050628
  34. OMEPRAZOLE [Concomitant]
     Route: 048
     Dates: start: 20050809
  35. PIPERACILLIN SODIUM AND TAZOBACTAM SODIUM [Concomitant]
     Dosage: DRUG: PIPERCILLIN/TAZOBACTAM; FORM: VIAL
     Route: 042
     Dates: start: 20041101, end: 20041110
  36. TEICOPLANIN [Concomitant]
     Dosage: FORM: VIAL
     Route: 042
     Dates: start: 20041101, end: 20041106

REACTIONS (1)
  - PERITONITIS [None]
